FAERS Safety Report 8533567-2 (Version None)
Quarter: 2012Q3

REPORT INFORMATION
  Report Type: 
  Country: None (occurrence: None)
  Receive Date: 20120724
  Receipt Date: 20120718
  Transmission Date: 20120928
  Serious: Yes (Other)
  Sender: FDA-Public Use
  Company Number: MX-PFIZER INC-2012174865

PATIENT
  Age: 27 Year
  Sex: Male
  Weight: 55 kg

DRUGS (2)
  1. LYRICA [Suspect]
     Dosage: 300 MG, 1X/DAY
     Route: 048
     Dates: start: 20110501
  2. LYRICA [Suspect]
     Indication: ANXIETY DISORDER
     Dosage: 150 MG, 1X/DAY
     Route: 048

REACTIONS (4)
  - POLLAKIURIA [None]
  - ABDOMINAL PAIN [None]
  - RENAL PAIN [None]
  - FATIGUE [None]
